FAERS Safety Report 10057468 (Version 2)
Quarter: 2014Q2

REPORT INFORMATION
  Report Type: Spontaneous
  Country: CN (occurrence: CN)
  Receive Date: 20140403
  Receipt Date: 20140403
  Transmission Date: 20141212
  Serious: Yes (Other)
  Sender: FDA-Public Use
  Company Number: CN-GILEAD-2014-0097675

PATIENT
  Age: 43 Year
  Sex: Male
  Weight: 72 kg

DRUGS (3)
  1. ADEFOVIR DIPIVOXIL [Suspect]
     Indication: HEPATITIS B
     Dosage: 1CAP PER DAY
     Route: 048
     Dates: start: 201310, end: 201403
  2. HEPTODIN [Suspect]
     Indication: HEPATITIS B
     Dosage: 1TAB PER DAY
     Route: 048
     Dates: start: 2011, end: 201310
  3. HEPTODIN [Suspect]
     Dosage: UNK
     Route: 065
     Dates: start: 201403

REACTIONS (2)
  - Feeling abnormal [Unknown]
  - Drug ineffective [Not Recovered/Not Resolved]
